FAERS Safety Report 5188615-7 (Version None)
Quarter: 2006Q4

REPORT INFORMATION
  Report Type: 
  Country: None (occurrence: None)
  Receive Date: 20061214
  Receipt Date: 20061201
  Transmission Date: 20070319
  Serious: Yes (Hospitalization)
  Sender: FDA-Public Use
  Company Number: 2005P1000615

PATIENT
  Age: 67 Year
  Sex: Male
  Weight: 60 kg

DRUGS (8)
  1. RETEPLASE (RETEPLASE) [Suspect]
     Indication: ACUTE MYOCARDIAL INFARCTION
     Dosage: IV
     Route: 042
     Dates: start: 20050302
  2. ABCIXIMAB (ABCIXIMAB) [Suspect]
     Indication: ACUTE MYOCARDIAL INFARCTION
     Dosage: IV
     Route: 042
     Dates: start: 20050302
  3. TICLOPIDINE [Concomitant]
  4. ASPIRIN [Concomitant]
  5. SIMVASTATIN [Concomitant]
  6. TRIMETAZIDINE [Concomitant]
  7. PERINDOPRIL ERBUMINE [Concomitant]
  8. CARVEDILOL [Concomitant]

REACTIONS (11)
  - ACUTE CORONARY SYNDROME [None]
  - ANEURYSM [None]
  - BLOOD CHOLESTEROL INCREASED [None]
  - BLOOD CREATINE PHOSPHOKINASE MB INCREASED [None]
  - BRADYCARDIA [None]
  - BRONCHOPNEUMONIA [None]
  - HYPERTENSION [None]
  - HYPOTENSION [None]
  - INFARCTION [None]
  - INFLAMMATION [None]
  - ISCHAEMIA [None]
